FAERS Safety Report 4565336-2 (Version None)
Quarter: 2005Q1

REPORT INFORMATION
  Report Type: 
  Country: None (occurrence: None)
  Receive Date: 20050126
  Receipt Date: 20050106
  Transmission Date: 20050727
  Serious: Yes (Hospitalization)
  Sender: FDA-Public Use
  Company Number: FR_050105548

PATIENT
  Sex: Female
  Weight: 47 kg

DRUGS (7)
  1. PROZAC [Suspect]
     Indication: DEPRESSION
     Dosage: 20 MG/L DAY
     Route: 048
     Dates: start: 20041212
  2. PEFLACINE            (PEFLOXACIN MESILATE) [Concomitant]
  3. DOXIUM              (CALCIUM DOBESILATE) [Concomitant]
  4. COZAAR [Concomitant]
  5. BROMAZEPAM [Concomitant]
  6. KARDEGIC              (LYSINE ASPIRIN) [Concomitant]
  7. INSULIN [Concomitant]

REACTIONS (13)
  - ANOREXIA [None]
  - ASTHENIA [None]
  - CHEST PAIN [None]
  - CLONIC CONVULSION [None]
  - DIZZINESS [None]
  - DYSSTASIA [None]
  - FALL [None]
  - HYPERREFLEXIA [None]
  - HYPOTHERMIA [None]
  - MUSCULAR WEAKNESS [None]
  - MYDRIASIS [None]
  - SEROTONIN SYNDROME [None]
  - TREMOR [None]
